FAERS Safety Report 11174898 (Version 2)
Quarter: 2015Q2

REPORT INFORMATION
  Report Type: Spontaneous
  Country: US (occurrence: US)
  Receive Date: 20150609
  Receipt Date: 20150612
  Transmission Date: 20150821
  Serious: Yes (Hospitalization)
  Sender: FDA-Public Use
  Company Number: US-PFIZER INC-2015185283

PATIENT
  Age: 84 Year
  Sex: Female
  Weight: 63.39 kg

DRUGS (1)
  1. IBRANCE [Suspect]
     Active Substance: PALBOCICLIB
     Indication: BREAST CANCER
     Dosage: 125 MG, 1 CAP DAILY X 21 DAYS
     Route: 048
     Dates: start: 20150519, end: 20150603

REACTIONS (13)
  - Dehydration [Unknown]
  - Vomiting [Unknown]
  - Muscle spasms [Recovering/Resolving]
  - Pneumonia [Unknown]
  - Pain in extremity [Unknown]
  - Jaundice [Unknown]
  - Muscular weakness [Unknown]
  - Insomnia [Unknown]
  - Somnambulism [Unknown]
  - Pancreatitis [Unknown]
  - Unresponsive to stimuli [Recovered/Resolved]
  - Balance disorder [Unknown]
  - Pyrexia [Recovering/Resolving]

NARRATIVE: CASE EVENT DATE: 20150528
